FAERS Safety Report 5317600-7 (Version None)
Quarter: 2007Q2

REPORT INFORMATION
  Report Type: 
  Country: None (occurrence: None)
  Receive Date: 20070507
  Receipt Date: 20070426
  Transmission Date: 20071010
  Serious: Yes (Hospitalization)
  Sender: FDA-Public Use
  Company Number: PHHO2007US06676

PATIENT
  Age: 77 Year
  Sex: Female
  Weight: 61.6 kg

DRUGS (3)
  1. ALISKIREN VS LISINOPRIL [Suspect]
     Indication: ESSENTIAL HYPERTENSION
     Dosage: 150 MG
     Route: 048
     Dates: start: 20070406, end: 20070412
  2. BONIVA [Concomitant]
     Indication: OSTEOPOROSIS
  3. BENICAR [Concomitant]
     Indication: HYPERTENSION

REACTIONS (2)
  - DEEP VEIN THROMBOSIS [None]
  - PAIN IN EXTREMITY [None]
